FAERS Safety Report 16902891 (Version 2)
Quarter: 2020Q1

REPORT INFORMATION
  Report Type: Report from Study
  Country: FR (occurrence: RU)
  Receive Date: 20191010
  Receipt Date: 20200120
  Transmission Date: 20200409
  Serious: Yes (Death, Other)
  Sender: FDA-Public Use
  Company Number: FR-ROCHE-2430853

PATIENT
  Age: 1 Year
  Sex: Male

DRUGS (2)
  1. VEMURAFENIB. [Suspect]
     Active Substance: VEMURAFENIB
     Indication: LANGERHANS^ CELL HISTIOCYTOSIS
     Dosage: INITIAL DOSE: 34.2 MG/KG/D?STEADY STATE DOSE: 68 MG/KG/D
     Route: 048
  2. CLOFARABINE. [Interacting]
     Active Substance: CLOFARABINE
     Indication: LANGERHANS^ CELL HISTIOCYTOSIS
     Route: 065

REACTIONS (8)
  - Neutropenia [Unknown]
  - Vomiting [Unknown]
  - Enterobacter sepsis [Fatal]
  - Electrocardiogram QT prolonged [Fatal]
  - Nausea [Unknown]
  - Off label use [Fatal]
  - Intentional product use issue [Fatal]
  - Drug interaction [Fatal]
